FAERS Safety Report 10183793 (Version 1)
Quarter: 2014Q2

REPORT INFORMATION
  Report Type: Spontaneous
  Country: JP (occurrence: JP)
  Receive Date: 20140520
  Receipt Date: 20140520
  Transmission Date: 20141212
  Serious: Yes (Other)
  Sender: FDA-Public Use
  Company Number: JP-WATSON-2014-10797

PATIENT
  Age: 63 Year
  Sex: Female

DRUGS (8)
  1. VINCRISTINE (UNKNOWN) [Suspect]
     Indication: ADULT T-CELL LYMPHOMA/LEUKAEMIA
     Dosage: DOSE-INTENSIFIED, 6 CYCLES
     Route: 065
  2. CYCLOPHOSPHAMIDE (UNKNOWN) [Suspect]
     Indication: ADULT T-CELL LYMPHOMA/LEUKAEMIA
     Dosage: DOSE-INTENSIFIED, 6 CYCLES
     Route: 065
  3. DOXORUBICIN (UNKNOWN) [Suspect]
     Indication: ADULT T-CELL LYMPHOMA/LEUKAEMIA
     Dosage: DOSE-INTENSIFIED, 6 CYCLES
     Route: 065
  4. PREDNISONE (UNKNOWN) [Suspect]
     Indication: ADULT T-CELL LYMPHOMA/LEUKAEMIA
     Dosage: DOSE-INTENSIFIED, 6 CYCLES
     Route: 065
  5. ETOPOSIDE (UNKNOWN) [Suspect]
     Indication: ADULT T-CELL LYMPHOMA/LEUKAEMIA
     Dosage: DOSE-INTENSIFIED, 6 CYCLES
     Route: 065
  6. CARBOPLATIN (UNKNOWN) [Suspect]
     Indication: ADULT T-CELL LYMPHOMA/LEUKAEMIA
     Dosage: DOSE-INTENSIFIED, 6 CYCLES
     Route: 065
  7. VINDESINE [Suspect]
     Indication: ADULT T-CELL LYMPHOMA/LEUKAEMIA
     Dosage: DOSE-INTENSIFIED, 6 CYCLES
     Route: 065
  8. RANIMUSTINE [Suspect]
     Indication: ADULT T-CELL LYMPHOMA/LEUKAEMIA
     Dosage: DOSE-INTENSIFIED, 6 CYCLES
     Route: 065

REACTIONS (1)
  - Bone marrow failure [Unknown]
